FAERS Safety Report 9457250 (Version 1)
Quarter: 2013Q3

REPORT INFORMATION
  Report Type: Spontaneous
  Country: IN (occurrence: None)
  Receive Date: 20130812
  Receipt Date: 20130812
  Transmission Date: 20140515
  Serious: Yes (Death, Hospitalization)
  Sender: FDA-Public Use
  Company Number: NSR_01207_2013

PATIENT
  Age: 50 Year
  Sex: Male

DRUGS (1)
  1. LEFLUNOMIDE [Suspect]
     Indication: ARTHRALGIA
     Dosage: 3 WEEKS 6
     Route: 048

REACTIONS (17)
  - Pyrexia [None]
  - Diarrhoea [None]
  - Rash erythematous [None]
  - Oliguria [None]
  - Diarrhoea [None]
  - Skin exfoliation [None]
  - Mucosal inflammation [None]
  - Leukocytosis [None]
  - Eosinophilia [None]
  - Platelet count decreased [None]
  - Renal failure acute [None]
  - Hepatic enzyme increased [None]
  - Drug reaction with eosinophilia and systemic symptoms [None]
  - Haemodialysis [None]
  - Hepatitis [None]
  - Abdominal pain upper [None]
  - Duodenal ulcer [None]
